APPROVED DRUG PRODUCT: OXYCODONE AND ACETAMINOPHEN
Active Ingredient: ACETAMINOPHEN; OXYCODONE HYDROCHLORIDE
Strength: 325MG;10MG
Dosage Form/Route: TABLET;ORAL
Application: A210079 | Product #004
Applicant: NESHER PHARMACEUTICALS USA LLC
Approved: Dec 28, 2017 | RLD: No | RS: No | Type: DISCN